FAERS Safety Report 5299248-6 (Version None)
Quarter: 2007Q2

REPORT INFORMATION
  Report Type: 
  Country: None (occurrence: None)
  Receive Date: 20070417
  Receipt Date: 20070405
  Transmission Date: 20071010
  Serious: Yes (Other)
  Sender: FDA-Public Use
  Company Number: US-ROCHE-479700

PATIENT
  Age: 57 Year
  Sex: Female
  Weight: 54.4 kg

DRUGS (14)
  1. PEGASYS [Suspect]
     Dosage: INITIAL DOSE.
     Route: 065
     Dates: start: 20060922
  2. PEGASYS [Suspect]
     Dosage: DOSE WAS DECREASED TO 135 MCG ON 30 OCTOBER 2006 FOR NEXT 4 DOSES, DUE TO DECREASE IN WHITE BLOOD C+
     Route: 065
     Dates: start: 20061030
  3. PEGASYS [Suspect]
     Route: 065
     Dates: start: 20061127, end: 20070307
  4. COPEGUS [Suspect]
     Route: 065
     Dates: start: 20060922, end: 20070307
  5. NEUPOGEN [Concomitant]
     Dosage: INITIALLY TWICE A WEEK BUT MORE RECENTLY ONCE A WEEK.
     Dates: start: 20061102
  6. ADVAIR DISKUS 100/50 [Concomitant]
     Dosage: PATIENT TOOK DAILY.
  7. ALBUTEROL [Concomitant]
     Dosage: PATIENT TOOK AS NEEDED.
  8. NEXIUM [Concomitant]
  9. LEVOTHYROXINE SODIUM [Concomitant]
  10. ASPIRIN [Concomitant]
     Indication: PAIN
     Dosage: PATIENT TOOK AS NEEDED FOR PAIN (HA).
  11. NYQUIL [Concomitant]
  12. SUDAFED 12 HOUR [Concomitant]
  13. BENADRYL [Concomitant]
  14. SYNTHROID [Concomitant]

REACTIONS (28)
  - ALANINE AMINOTRANSFERASE INCREASED [None]
  - ASPARTATE AMINOTRANSFERASE INCREASED [None]
  - ASTHENIA [None]
  - BACK PAIN [None]
  - BLOOD ALKALINE PHOSPHATASE INCREASED [None]
  - BLOOD GLUCOSE DECREASED [None]
  - DECREASED APPETITE [None]
  - DRY EYE [None]
  - DYSPNOEA [None]
  - EPIGASTRIC DISCOMFORT [None]
  - EPISTAXIS [None]
  - FATIGUE [None]
  - HAEMATOCRIT DECREASED [None]
  - HAEMOGLOBIN DECREASED [None]
  - HEADACHE [None]
  - INFLUENZA LIKE ILLNESS [None]
  - INJECTION SITE BRUISING [None]
  - JOINT CREPITATION [None]
  - MOUTH HAEMORRHAGE [None]
  - MYALGIA [None]
  - NAUSEA [None]
  - OPHTHALMOLOGICAL EXAMINATION ABNORMAL [None]
  - PARAESTHESIA [None]
  - RASH [None]
  - RESTLESSNESS [None]
  - VAGINAL HAEMORRHAGE [None]
  - VISUAL ACUITY REDUCED [None]
  - WHITE BLOOD CELL COUNT DECREASED [None]
